FAERS Safety Report 18476915 (Version 1)
Quarter: 2020Q4

REPORT INFORMATION
  Report Type: Spontaneous
  Country: PT (occurrence: PT)
  Receive Date: 20201107
  Receipt Date: 20201107
  Transmission Date: 20210114
  Serious: Yes (Other)
  Sender: FDA-Public Use
  Company Number: NVSC2020PT295588

PATIENT
  Age: 50 Year
  Sex: Female

DRUGS (1)
  1. COSENTYX [Suspect]
     Active Substance: SECUKINUMAB
     Indication: PSORIASIS AREA SEVERITY INDEX
     Dosage: 300 MG, QMO, (TAKING COSENTYX FOR TWO YEARS)
     Route: 065

REACTIONS (1)
  - COVID-19 [Unknown]
